FAERS Safety Report 6249128-4 (Version None)
Quarter: 2009Q2

REPORT INFORMATION
  Report Type: 
  Country: None (occurrence: None)
  Receive Date: 20090625
  Receipt Date: 20090611
  Transmission Date: 20091009
  Serious: No
  Sender: FDA-Public Use
  Company Number: APP200900327

PATIENT
  Age: 68 Year
  Sex: Male
  Weight: 63 kg

DRUGS (1)
  1. SENSORCAINE [Suspect]
     Indication: SPINAL ANAESTHESIA
     Dosage: 10 MG, INTRATHECAL
     Route: 037

REACTIONS (2)
  - PARAESTHESIA [None]
  - PHANTOM PAIN [None]
